FAERS Safety Report 7112130-4 (Version None)
Quarter: 2010Q4

REPORT INFORMATION
  Report Type: 
  Country: None (occurrence: None)
  Receive Date: 20101119
  Receipt Date: 20091130
  Transmission Date: 20110411
  Serious: No
  Sender: FDA-Public Use
  Company Number: A0832282A

PATIENT
  Age: 96 Year
  Sex: Male

DRUGS (6)
  1. AVODART [Suspect]
     Indication: BENIGN PROSTATIC HYPERPLASIA
     Dosage: 1CAP PER DAY
     Route: 048
     Dates: start: 20090801, end: 20090815
  2. LIPITOR [Concomitant]
  3. LISINOPRIL [Concomitant]
  4. SYNTHROID [Concomitant]
  5. FUROSEMIDE [Concomitant]
  6. COUMADIN [Concomitant]

REACTIONS (1)
  - NIPPLE PAIN [None]
